FAERS Safety Report 21904052 (Version 1)
Quarter: 2023Q1

REPORT INFORMATION
  Report Type: Spontaneous
  Country: US (occurrence: US)
  Receive Date: 20230124
  Receipt Date: 20230124
  Transmission Date: 20230417
  Serious: Yes (Other)
  Sender: FDA-Public Use
  Company Number: US-BAYER-2023A005002

PATIENT
  Age: 62 Year
  Sex: Male

DRUGS (8)
  1. ASPIRIN [Suspect]
     Active Substance: ASPIRIN
  2. NAPROXEN SODIUM [Suspect]
     Active Substance: NAPROXEN SODIUM
  3. ATORVASTATIN [Suspect]
     Active Substance: ATORVASTATIN
  4. IBUPROFEN [Suspect]
     Active Substance: IBUPROFEN
  5. LEVOTHYROXINE [Suspect]
     Active Substance: LEVOTHYROXINE
  6. ALPRAZOLAM [Concomitant]
     Active Substance: ALPRAZOLAM
  7. OXYCODONE AND ACETAMINOPHEN [Concomitant]
     Active Substance: ACETAMINOPHEN\OXYCODONE HYDROCHLORIDE
  8. CYCLOBENZAPRINE [Concomitant]
     Active Substance: CYCLOBENZAPRINE

REACTIONS (10)
  - Subdural haematoma [None]
  - Anti-neutrophil cytoplasmic antibody positive vasculitis [None]
  - Cutaneous vasculitis [None]
  - Goodpasture^s syndrome [None]
  - Acute kidney injury [None]
  - Type 2 diabetes mellitus [None]
  - Hyperkalaemia [None]
  - Blood creatine phosphokinase increased [None]
  - Blood urine present [None]
  - Incorrect dosage administered [None]
